FAERS Safety Report 12350060 (Version 1)
Quarter: 2016Q2

REPORT INFORMATION
  Report Type: Spontaneous
  Country: US (occurrence: None)
  Receive Date: 20160509
  Receipt Date: 20160509
  Transmission Date: 20160815
  Serious: Yes (Other)
  Sender: FDA-Public Use
  Company Number: None

PATIENT
  Age: 9 Year
  Sex: Male
  Weight: 28.12 kg

DRUGS (2)
  1. GUANFACINE ER 2 MG MYLAND [Suspect]
     Active Substance: GUANFACINE
     Indication: ATTENTION DEFICIT/HYPERACTIVITY DISORDER
     Route: 048
     Dates: start: 201501, end: 20160222
  2. INTUNIV [Suspect]
     Active Substance: GUANFACINE HYDROCHLORIDE

REACTIONS (3)
  - Product substitution issue [None]
  - Abnormal behaviour [None]
  - Drug ineffective [None]

NARRATIVE: CASE EVENT DATE: 20160222
